FAERS Safety Report 12388443 (Version 3)
Quarter: 2017Q3

REPORT INFORMATION
  Report Type: Spontaneous
  Country: CA (occurrence: CA)
  Receive Date: 20160520
  Receipt Date: 20170810
  Transmission Date: 20171127
  Serious: Yes (Other)
  Sender: FDA-Public Use
  Company Number: CA-AMGEN-CANSP2016063322

PATIENT
  Age: 51 Year
  Sex: Female

DRUGS (6)
  1. ENBREL [Suspect]
     Active Substance: ETANERCEPT
     Indication: RHEUMATOID ARTHRITIS
     Dosage: UNK
     Route: 058
  2. TYLENOL [Concomitant]
     Active Substance: ACETAMINOPHEN
     Dosage: UNK
  3. CIMZIA [Suspect]
     Active Substance: CERTOLIZUMAB PEGOL
     Indication: PRODUCT USED FOR UNKNOWN INDICATION
     Dosage: UNK
     Route: 065
  4. XELJANZ [Suspect]
     Active Substance: TOFACITINIB CITRATE
     Indication: RHEUMATOID ARTHRITIS
     Dosage: 5 MG, QD
     Route: 048
     Dates: start: 20160521, end: 20161027
  5. ORENCIA [Concomitant]
     Active Substance: ABATACEPT
     Dosage: UNK
  6. METHOTREXATE. [Concomitant]
     Active Substance: METHOTREXATE
     Indication: RHEUMATOID ARTHRITIS
     Dosage: UNK

REACTIONS (16)
  - Arthralgia [Not Recovered/Not Resolved]
  - Joint swelling [Not Recovered/Not Resolved]
  - Loss of personal independence in daily activities [Not Recovered/Not Resolved]
  - Cough [Recovered/Resolved]
  - Peripheral swelling [Not Recovered/Not Resolved]
  - Hepatic fibrosis [Unknown]
  - Diabetes mellitus [Unknown]
  - Rheumatoid factor positive [Unknown]
  - Condition aggravated [Not Recovered/Not Resolved]
  - Pyrexia [Recovered/Resolved]
  - Drug ineffective [Not Recovered/Not Resolved]
  - Rheumatoid arthritis [Unknown]
  - Mobility decreased [Unknown]
  - Arthropathy [Unknown]
  - Musculoskeletal pain [Not Recovered/Not Resolved]
  - Treatment failure [Not Recovered/Not Resolved]

NARRATIVE: CASE EVENT DATE: 2012
